FAERS Safety Report 20209515 (Version 1)
Quarter: 2021Q4

REPORT INFORMATION
  Report Type: Report from Study
  Country: IE (occurrence: IE)
  Receive Date: 20211221
  Receipt Date: 20211221
  Transmission Date: 20220303
  Serious: Yes (Hospitalization)
  Sender: FDA-Public Use
  Company Number: IE-AstraZeneca-2021A872463

PATIENT
  Age: 1 Year
  Sex: Female

DRUGS (3)
  1. SYNAGIS [Suspect]
     Active Substance: PALIVIZUMAB
     Indication: Premature baby
     Dosage: 15.0MG/KG AS REQUIRED
     Route: 030
     Dates: start: 20211110
  2. BECLOMETHASONE [Concomitant]
     Active Substance: BECLOMETHASONE
     Indication: Product used for unknown indication
     Dosage: 100UG 1PUFF BID
     Route: 065
  3. ALBUTEROL [Concomitant]
     Active Substance: ALBUTEROL
     Indication: Product used for unknown indication
     Dosage: 100MCGS 2 PUFFS PRN
     Route: 065

REACTIONS (7)
  - Metapneumovirus infection [Unknown]
  - Illness [Unknown]
  - Malaise [Unknown]
  - Wheezing [Unknown]
  - Tachypnoea [Unknown]
  - Use of accessory respiratory muscles [Unknown]
  - Body temperature increased [Unknown]

NARRATIVE: CASE EVENT DATE: 20211206
